FAERS Safety Report 9163100 (Version 1)
Quarter: 2013Q1

REPORT INFORMATION
  Report Type: Spontaneous
  Country: US (occurrence: US)
  Receive Date: 20130314
  Receipt Date: 20130314
  Transmission Date: 20140127
  Serious: No
  Sender: FDA-Public Use
  Company Number: US-009507513-1303USA005353

PATIENT
  Sex: Male
  Weight: 54.42 kg

DRUGS (3)
  1. VICTRELIS [Suspect]
     Indication: HEPATITIS C
     Dosage: 12 DF A DAY
     Dates: start: 20130304, end: 20130306
  2. RIBAVIRIN [Suspect]
     Indication: HEPATITIS C
     Dosage: UNK
  3. PEGASYS [Suspect]
     Indication: HEPATITIS C
     Dosage: UNK
     Dates: start: 20130205

REACTIONS (7)
  - Malaise [Unknown]
  - Depression [Unknown]
  - Mental disorder [Unknown]
  - Arthralgia [Unknown]
  - Anaemia [Unknown]
  - Leukopenia [Unknown]
  - Chest pain [Unknown]
